FAERS Safety Report 4289423-1 (Version None)
Quarter: 2004Q1

REPORT INFORMATION
  Report Type: 
  Country: None (occurrence: None)
  Receive Date: 20040206
  Receipt Date: 20040108
  Transmission Date: 20041129
  Serious: Yes (Other)
  Sender: FDA-Public Use
  Company Number: 2003115363

PATIENT
  Age: 74 Year
  Sex: Male
  Weight: 70 kg

DRUGS (8)
  1. ACCUPRIL [Suspect]
     Indication: ILL-DEFINED DISORDER
     Dosage: 20 MG QD
  2. TRACLEER [Suspect]
     Indication: PULMONARY HYPERTENSION
     Dosage: 62.5 MG ORAL
     Route: 048
     Dates: start: 20021218, end: 20030701
  3. BUMETANIDE [Concomitant]
  4. FLUTICASONE PROPIONATE [Concomitant]
  5. OXYGEN (OXYGEN) [Concomitant]
  6. COMBIVENT (IPRATROPIUM BROMIDE, SALBUMATOL SULFATE) [Concomitant]
  7. METOLAZONE [Concomitant]
  8. THEOPHYLLINE [Concomitant]

REACTIONS (4)
  - DISEASE PROGRESSION [None]
  - DYSPNOEA EXERTIONAL [None]
  - HYPOTENSION [None]
  - PULMONARY HYPERTENSION [None]
